FAERS Safety Report 5148864-0 (Version None)
Quarter: 2006Q4

REPORT INFORMATION
  Report Type: 
  Country: None (occurrence: None)
  Receive Date: 20061113
  Receipt Date: 20061102
  Transmission Date: 20070319
  Serious: Yes (Life-Threatening, Hospitalization)
  Sender: FDA-Public Use
  Company Number: FR-ABBOTT-06P-056-0349191-00

PATIENT
  Age: 71 Year
  Sex: Female

DRUGS (9)
  1. MICROPAKINE [Suspect]
     Indication: DRUG USE FOR UNKNOWN INDICATION
     Route: 048
     Dates: start: 20060710, end: 20060902
  2. MICROPAKINE [Suspect]
     Route: 048
     Dates: start: 20060903, end: 20060907
  3. MICROPAKINE [Suspect]
     Route: 048
     Dates: start: 20060908, end: 20060911
  4. ESOMEPRAZOLE MAGNESIUM [Suspect]
     Indication: DRUG USE FOR UNKNOWN INDICATION
     Route: 048
     Dates: start: 20060525, end: 20060828
  5. ADRAFINIL [Suspect]
     Indication: DRUG USE FOR UNKNOWN INDICATION
     Route: 048
     Dates: start: 20060725, end: 20060828
  6. FLUINDIONE [Suspect]
     Indication: DRUG USE FOR UNKNOWN INDICATION
     Route: 048
     Dates: start: 20060804, end: 20060828
  7. PREDNISOLONE SODIUM PHOSPHATE [Concomitant]
     Indication: DRUG USE FOR UNKNOWN INDICATION
     Route: 048
     Dates: start: 20060616
  8. TIANEPTINE [Concomitant]
     Indication: DRUG USE FOR UNKNOWN INDICATION
     Route: 048
     Dates: start: 20060711
  9. ACENOCOUMAROL [Concomitant]
     Indication: DRUG USE FOR UNKNOWN INDICATION
     Dates: start: 20060828

REACTIONS (6)
  - KLEBSIELLA INFECTION [None]
  - MYELODYSPLASTIC SYNDROME [None]
  - PANCYTOPENIA [None]
  - PYREXIA [None]
  - RETICULOCYTE COUNT INCREASED [None]
  - UNEVALUABLE EVENT [None]
